FAERS Safety Report 19092359 (Version 1)
Quarter: 2021Q2

REPORT INFORMATION
  Report Type: Spontaneous
  Country: US (occurrence: US)
  Receive Date: 20210404
  Receipt Date: 20210404
  Transmission Date: 20210717
  Serious: Yes (Life-Threatening, Hospitalization, Disabling, Other)
  Sender: FDA-Public Use
  Company Number: None

PATIENT
  Age: 42 Month
  Sex: Female
  Weight: 60.75 kg

DRUGS (5)
  1. CALCIUM [Concomitant]
     Active Substance: CALCIUM
  2. SINGULAIR [Suspect]
     Active Substance: MONTELUKAST SODIUM
     Indication: HYPERSENSITIVITY
  3. IRON [Concomitant]
     Active Substance: IRON
  4. MAGNESIUM AND ZINC [Concomitant]
  5. VITAMIN D [Concomitant]
     Active Substance: VITAMIN D NOS

REACTIONS (19)
  - Bone pain [None]
  - Burning sensation [None]
  - Balance disorder [None]
  - Cold sweat [None]
  - Dizziness [None]
  - Paraesthesia [None]
  - Gastrointestinal pain [None]
  - Aggression [None]
  - Abdominal pain upper [None]
  - Confusional state [None]
  - Middle insomnia [None]
  - Anger [None]
  - Asthenia [None]
  - Gait inability [None]
  - Syncope [None]
  - Dyspnoea [None]
  - Urticaria [None]
  - Rash [None]
  - Feeling cold [None]

NARRATIVE: CASE EVENT DATE: 20210329
